FAERS Safety Report 9357033 (Version 2)
Quarter: 2013Q4

REPORT INFORMATION
  Report Type: Spontaneous
  Country: FR (occurrence: None)
  Receive Date: 20130617
  Receipt Date: 20131112
  Transmission Date: 20140711
  Serious: Yes (Death)
  Sender: FDA-Public Use
  Company Number: DSM-2013-00535

PATIENT
  Age: 56 Year
  Sex: Male

DRUGS (2)
  1. COOLMETEC [Suspect]
     Indication: PRODUCT USED FOR UNKNOWN INDICATION
     Route: 048
     Dates: start: 20121015
  2. CLOPIDOGREL BIOGARAN [Suspect]
     Indication: PRODUCT USED FOR UNKNOWN INDICATION
     Route: 048
     Dates: start: 20121015

REACTIONS (2)
  - Fatigue [None]
  - Completed suicide [None]
